FAERS Safety Report 8326421-2 (Version None)
Quarter: 2012Q2

REPORT INFORMATION
  Report Type: 
  Country: None (occurrence: None)
  Receive Date: 20120501
  Receipt Date: 20120425
  Transmission Date: 20120825
  Serious: Yes (Hospitalization, Disabling, Other)
  Sender: FDA-Public Use
  Company Number: US-MERCK-1201USA00337

PATIENT
  Age: 52 Year
  Sex: Female
  Weight: 90 kg

DRUGS (12)
  1. ALENDRONATE SODIUM [Suspect]
     Route: 065
  2. DERMATOLOGIC (UNSPECIFIED) [Concomitant]
     Indication: ROSACEA
     Route: 065
  3. SEREVENT [Concomitant]
     Indication: ASTHMA
     Route: 055
  4. WELLBUTRIN [Concomitant]
     Indication: EX-TOBACCO USER
     Route: 065
     Dates: end: 20010101
  5. FOSAMAX [Suspect]
     Indication: OSTEOPOROSIS
     Route: 048
     Dates: start: 20010101, end: 20100801
  6. MAXAIR [Concomitant]
     Indication: ASTHMA
     Route: 055
  7. ZYBAN [Concomitant]
     Indication: EX-TOBACCO USER
     Route: 065
     Dates: start: 20001201
  8. ESTROGENS (UNSPECIFIED) [Concomitant]
     Indication: PREMATURE MENOPAUSE
     Route: 065
     Dates: end: 19990101
  9. NICODERM [Concomitant]
     Indication: EX-TOBACCO USER
     Route: 065
  10. AZMACORT [Concomitant]
     Indication: ASTHMA
     Route: 055
  11. NICOTINE [Concomitant]
     Indication: EX-TOBACCO USER
     Route: 065
  12. ADVAIR DISKUS 100/50 [Concomitant]
     Indication: ASTHMA
     Route: 055
     Dates: start: 20011228

REACTIONS (42)
  - ENDOMETRIAL HYPERTROPHY [None]
  - POSTMENOPAUSAL HAEMORRHAGE [None]
  - ASTHMA [None]
  - SKELETAL INJURY [None]
  - HIATUS HERNIA [None]
  - VULVOVAGINAL DRYNESS [None]
  - SKIN IRRITATION [None]
  - PLANTAR FASCIITIS [None]
  - MITRAL VALVE INCOMPETENCE [None]
  - LOW TURNOVER OSTEOPATHY [None]
  - SPINAL COLUMN STENOSIS [None]
  - RESTLESS LEGS SYNDROME [None]
  - PAIN IN EXTREMITY [None]
  - FEMUR FRACTURE [None]
  - FRACTURE NONUNION [None]
  - LIPOMA [None]
  - SINUS BRADYCARDIA [None]
  - BRONCHITIS [None]
  - GASTROOESOPHAGEAL REFLUX DISEASE [None]
  - SYNCOPE [None]
  - STRESS URINARY INCONTINENCE [None]
  - MUSCULOSKELETAL DISORDER [None]
  - FALL [None]
  - INSOMNIA [None]
  - OSTEOARTHRITIS [None]
  - URGE INCONTINENCE [None]
  - CHRONIC OBSTRUCTIVE PULMONARY DISEASE [None]
  - CYSTITIS INTERSTITIAL [None]
  - DRUG INEFFECTIVE [None]
  - CYSTITIS [None]
  - MENISCUS LESION [None]
  - LOWER LIMB FRACTURE [None]
  - DYSPEPSIA [None]
  - OROPHARYNGEAL PAIN [None]
  - MITRAL VALVE PROLAPSE [None]
  - CONSTIPATION [None]
  - STRESS FRACTURE [None]
  - PATELLOFEMORAL PAIN SYNDROME [None]
  - LOSS OF LIBIDO [None]
  - GOUT [None]
  - VULVOVAGINAL CANDIDIASIS [None]
  - WEIGHT INCREASED [None]
